FAERS Safety Report 20599778 (Version 1)
Quarter: 2022Q1

REPORT INFORMATION
  Report Type: Spontaneous
  Country: DO (occurrence: DO)
  Receive Date: 20220316
  Receipt Date: 20220316
  Transmission Date: 20220423
  Serious: Yes (Other)
  Sender: FDA-Public Use
  Company Number: DO-NOVOPROD-899872

PATIENT
  Sex: Female
  Weight: 3.039 kg

DRUGS (1)
  1. TRESIBA [Suspect]
     Active Substance: INSULIN DEGLUDEC
     Indication: Product used for unknown indication
     Dosage: 7 IU, QD
     Route: 064
     Dates: start: 20210803, end: 20211202

REACTIONS (3)
  - Umbilical cord around neck [Recovered/Resolved]
  - Premature baby [Unknown]
  - Foetal exposure during pregnancy [Recovered/Resolved]

NARRATIVE: CASE EVENT DATE: 20210803
